FAERS Safety Report 12308850 (Version 1)
Quarter: 2016Q2

REPORT INFORMATION
  Report Type: Spontaneous
  Country: US (occurrence: None)
  Receive Date: 20160426
  Receipt Date: 20160426
  Transmission Date: 20160815
  Serious: Yes (Life-Threatening, Hospitalization)
  Sender: FDA-Public Use
  Company Number: None

PATIENT
  Age: 62 Year
  Sex: Female
  Weight: 108.86 kg

DRUGS (11)
  1. METAPROLOL [Concomitant]
     Active Substance: METOPROLOL
  2. ZYRTEC [Concomitant]
     Active Substance: CETIRIZINE HYDROCHLORIDE
  3. BABY ASPIRIN [Concomitant]
     Active Substance: ASPIRIN
  4. TORSIMIDE [Concomitant]
  5. VITAMIN [Concomitant]
     Active Substance: VITAMINS
  6. CYMBALTA [Concomitant]
     Active Substance: DULOXETINE HYDROCHLORIDE
  7. TOPAMORITE [Concomitant]
  8. VITAMIN [Concomitant]
     Active Substance: VITAMINS
  9. BRILINTA [Suspect]
     Active Substance: TICAGRELOR
     Indication: CORONARY ARTERY BYPASS
     Route: 048
     Dates: start: 20130408, end: 20150901
  10. NOVOLOG [Concomitant]
     Active Substance: INSULIN ASPART
  11. LANTUS [Concomitant]
     Active Substance: INSULIN GLARGINE

REACTIONS (3)
  - Haematochezia [None]
  - Loss of consciousness [None]
  - Epistaxis [None]

NARRATIVE: CASE EVENT DATE: 20151222
